FAERS Safety Report 5860629-0 (Version None)
Quarter: 2008Q3

REPORT INFORMATION
  Report Type: 
  Country: None (occurrence: None)
  Receive Date: 20080827
  Receipt Date: 20080818
  Transmission Date: 20090109
  Serious: Yes (Hospitalization, Other)
  Sender: FDA-Public Use
  Company Number: CH-ABBOTT-08P-151-0471307-00

PATIENT
  Sex: Female

DRUGS (2)
  1. HUMIRA [Suspect]
     Indication: POLYARTHRITIS
     Dates: start: 20080101, end: 20080703
  2. METHOTREXATE [Suspect]
     Indication: DRUG USE FOR UNKNOWN INDICATION
     Dates: start: 20080301, end: 20080703

REACTIONS (5)
  - COLITIS ULCERATIVE [None]
  - CUTANEOUS VASCULITIS [None]
  - PANCYTOPENIA [None]
  - PNEUMONITIS [None]
  - STOMATITIS [None]
